FAERS Safety Report 26194080 (Version 1)
Quarter: 2025Q4

REPORT INFORMATION
  Report Type: Spontaneous
  Country: US (occurrence: US)
  Receive Date: 20251224
  Receipt Date: 20251224
  Transmission Date: 20260118
  Serious: Yes (Hospitalization)
  Sender: JOHNSON AND JOHNSON
  Company Number: US-JNJFOC-20251226665

PATIENT
  Sex: Female
  Weight: 86.2 kg

DRUGS (33)
  1. OPSUMIT [Suspect]
     Active Substance: MACITENTAN
     Indication: Product used for unknown indication
     Route: 048
  2. TYVASO DPI [Suspect]
     Active Substance: TREPROSTINIL
     Indication: Pulmonary arterial hypertension
     Route: 055
     Dates: start: 20250605
  3. TYVASO DPI [Suspect]
     Active Substance: TREPROSTINIL
     Route: 055
  4. TYVASO DPI [Suspect]
     Active Substance: TREPROSTINIL
     Route: 055
  5. TYVASO DPI [Suspect]
     Active Substance: TREPROSTINIL
     Route: 055
  6. COLLAGEN [Concomitant]
     Active Substance: COLLAGEN
     Indication: Product used for unknown indication
  7. INSPRA [Concomitant]
     Active Substance: EPLERENONE
     Indication: Product used for unknown indication
  8. TYLENOL [Concomitant]
     Active Substance: ACETAMINOPHEN
     Indication: Product used for unknown indication
  9. KLOR-CON/25 [Concomitant]
     Active Substance: POTASSIUM CHLORIDE
     Indication: Product used for unknown indication
  10. RETIN-A [Concomitant]
     Active Substance: TRETINOIN
     Indication: Product used for unknown indication
  11. BIOTIN [Concomitant]
     Active Substance: BIOTIN
     Indication: Product used for unknown indication
  12. PANTOPRAZOLE SODIUM [Concomitant]
     Active Substance: PANTOPRAZOLE SODIUM
     Indication: Product used for unknown indication
  13. SERTRALINE HYDROCHLORIDE [Concomitant]
     Active Substance: SERTRALINE HYDROCHLORIDE
     Indication: Product used for unknown indication
  14. CALCIUM [Concomitant]
     Active Substance: CALCIUM
     Indication: Product used for unknown indication
  15. FLONASE ALLERGY RELIEF [Concomitant]
     Active Substance: FLUTICASONE PROPIONATE
     Indication: Product used for unknown indication
  16. TADALAFIL [Concomitant]
     Active Substance: TADALAFIL
     Indication: Product used for unknown indication
  17. IMITREX [Concomitant]
     Active Substance: SUMATRIPTAN SUCCINATE
     Indication: Product used for unknown indication
  18. MINOXIDIL [Concomitant]
     Active Substance: MINOXIDIL
     Indication: Product used for unknown indication
  19. MULTIVITAMINS [ASCORBIC ACID;ERGOCALCIFEROL;FOLIC ACID;NICOTINAMIDE;PA [Concomitant]
     Indication: Product used for unknown indication
  20. TRANEXAMIC ACID [Concomitant]
     Active Substance: TRANEXAMIC ACID
     Indication: Product used for unknown indication
  21. COENZYME Q10 AND SODIUM CHLORIDE [Concomitant]
     Indication: Product used for unknown indication
  22. METFORMIN HYDROCHLORIDE [Concomitant]
     Active Substance: METFORMIN HYDROCHLORIDE
     Indication: Product used for unknown indication
  23. COLCHICINE [Concomitant]
     Active Substance: COLCHICINE
     Indication: Product used for unknown indication
  24. LEVOTHYROXINE SODIUM [Concomitant]
     Active Substance: LEVOTHYROXINE SODIUM
     Indication: Product used for unknown indication
  25. HERBALS\TURMERIC [Concomitant]
     Active Substance: HERBALS\TURMERIC
     Indication: Product used for unknown indication
  26. APPLE CIDER VINEGAR [MALUS SPP. VINEGAR EXTRACT] [Concomitant]
     Indication: Product used for unknown indication
  27. CETIRIZINE HCL [Concomitant]
     Active Substance: CETIRIZINE HYDROCHLORIDE
     Indication: Product used for unknown indication
  28. MIRENA [Concomitant]
     Active Substance: LEVONORGESTREL
     Indication: Product used for unknown indication
  29. HYDROXYZINE HYDROCHLORIDE [Concomitant]
     Active Substance: HYDROXYZINE HYDROCHLORIDE
     Indication: Product used for unknown indication
  30. ONDANSETRON HYDROCHLORIDE [Concomitant]
     Active Substance: ONDANSETRON HYDROCHLORIDE
     Indication: Product used for unknown indication
  31. TORSEMIDE [Concomitant]
     Active Substance: TORSEMIDE
     Indication: Product used for unknown indication
  32. AVASTIN [Concomitant]
     Active Substance: BEVACIZUMAB
     Indication: Product used for unknown indication
  33. OCTREOTIDE ACETATE [Concomitant]
     Active Substance: OCTREOTIDE ACETATE
     Indication: Product used for unknown indication

REACTIONS (13)
  - Haemorrhage [Unknown]
  - Hypotension [Unknown]
  - Anaemia [Unknown]
  - Hypoaesthesia [Unknown]
  - Paraesthesia [Unknown]
  - Fatigue [Unknown]
  - Nausea [Unknown]
  - Blood pressure systolic decreased [Unknown]
  - Headache [Unknown]
  - Diarrhoea [Unknown]
  - Dizziness [Unknown]
  - Cough [Unknown]
  - Migraine [Unknown]

NARRATIVE: CASE EVENT DATE: 20250101
